FAERS Safety Report 5312600-5 (Version None)
Quarter: 2007Q2

REPORT INFORMATION
  Report Type: 
  Country: None (occurrence: None)
  Receive Date: 20070430
  Receipt Date: 20070126
  Transmission Date: 20071010
  Serious: No
  Sender: FDA-Public Use
  Company Number: 2007UW01678

PATIENT
  Sex: Female

DRUGS (5)
  1. NEXIUM [Suspect]
     Indication: OESOPHAGEAL ULCER
     Route: 048
  2. NEXIUM [Suspect]
     Indication: CHEST DISCOMFORT
     Route: 048
  3. NEXIUM [Suspect]
     Indication: MUSCULOSKELETAL DISCOMFORT
     Route: 048
  4. LOVASTATIN [Concomitant]
  5. ATENOLOL [Concomitant]
     Route: 048

REACTIONS (3)
  - HICCUPS [None]
  - NAUSEA [None]
  - SENSATION OF FOREIGN BODY [None]
